FAERS Safety Report 10225359 (Version 3)
Quarter: 2014Q3

REPORT INFORMATION
  Report Type: Report from Study
  Country: CN (occurrence: CN)
  Receive Date: 20140609
  Receipt Date: 20140704
  Transmission Date: 20150326
  Serious: Yes (Hospitalization)
  Sender: FDA-Public Use
  Company Number: CN-009507513-1406CHN002531

PATIENT
  Age: 59 Year
  Sex: Female
  Weight: 53.4 kg

DRUGS (6)
  1. MECOBALAMIN [Concomitant]
     Active Substance: METHYLCOBALAMIN
     Indication: DIABETIC NEUROPATHY
     Dosage: TOTAL DAILY DOSE:1500MG, TID
     Dates: start: 20140126
  2. GUI ZHI FU LING JIAO NANG [Concomitant]
     Indication: VAGINAL HAEMORRHAGE
     Dosage: TOTAL DAILY DOSE:9 CAPSULES, TID
     Dates: start: 20140415
  3. SITAGLIPTIN PHOSPHATE [Suspect]
     Active Substance: SITAGLIPTIN PHOSPHATE
     Indication: TYPE 2 DIABETES MELLITUS
     Dosage: 100 MG, QD
     Route: 048
     Dates: start: 20131220, end: 20140308
  4. SITAGLIPTIN PHOSPHATE [Suspect]
     Active Substance: SITAGLIPTIN PHOSPHATE
     Dosage: UNK
     Route: 048
     Dates: start: 20140311, end: 20140424
  5. DIAMICRON MR [Concomitant]
     Active Substance: GLICLAZIDE
     Indication: DIABETES MELLITUS
     Dosage: TOTAL DAILY DOSE:60 MG, QD
     Dates: start: 20130227
  6. BA ZHEN YI MU JIAO NANG [Concomitant]
     Indication: VAGINAL HAEMORRHAGE
     Dosage: TOTAL DAILY DOSE:9 CAPSULES, TID
     Dates: start: 20140415

REACTIONS (1)
  - Cervix carcinoma [Not Recovered/Not Resolved]

NARRATIVE: CASE EVENT DATE: 20140415
